FAERS Safety Report 8938336 (Version 2)
Quarter: 2013Q4

REPORT INFORMATION
  Report Type: Report from Study
  Country: US (occurrence: US)
  Receive Date: 20121203
  Receipt Date: 20131206
  Transmission Date: 20140711
  Serious: Yes (Death, Other)
  Sender: FDA-Public Use
  Company Number: PHEH2012US023567

PATIENT
  Age: 79 Year
  Sex: Male

DRUGS (8)
  1. GLEEVEC [Suspect]
     Indication: GASTROINTESTINAL STROMAL TUMOUR
     Dosage: 400 MG, QD
     Route: 048
     Dates: start: 20060106, end: 20071221
  2. GLEEVEC [Suspect]
     Dosage: 200 MG, QD
     Route: 048
     Dates: start: 20090327
  3. GLEEVEC [Suspect]
     Dosage: 300 MG, UNK
     Route: 048
     Dates: start: 20110603
  4. CENTRUM [Concomitant]
     Indication: SUPPLEMENTATION THERAPY
     Dosage: 10 MG, QD
     Dates: start: 20120101
  5. DIOVAN [Concomitant]
     Indication: HYPERTENSION
     Dosage: 160 MG, QD
     Dates: start: 20120101
  6. PREVACID [Concomitant]
     Indication: PROPHYLAXIS
     Dosage: 30 MG, QD
     Dates: start: 20120101
  7. SENOKOT [Concomitant]
     Indication: CONSTIPATION
     Dosage: 5 ML, QD
     Dates: start: 20120101
  8. TENORMIN [Concomitant]
     Dosage: 25 MG, QD
     Route: 048

REACTIONS (4)
  - Gastrointestinal stromal tumour [Fatal]
  - Gastrointestinal haemorrhage [Fatal]
  - Pleural effusion [Unknown]
  - Anaemia [Unknown]
